FAERS Safety Report 10232862 (Version 2)
Quarter: 2014Q2

REPORT INFORMATION
  Report Type: Spontaneous
  Country: US (occurrence: US)
  Receive Date: 20140612
  Receipt Date: 20140612
  Transmission Date: 20141212
  Serious: Yes (Hospitalization, Other)
  Sender: FDA-Public Use
  Company Number: US-BAXTER-2014BAX026537

PATIENT
  Sex: Male

DRUGS (1)
  1. DIANEAL LOW CALCIUM [Suspect]
     Indication: PERITONEAL DIALYSIS
     Route: 033
     Dates: end: 201405

REACTIONS (4)
  - Gastrointestinal haemorrhage [Recovering/Resolving]
  - Renal neoplasm [Recovering/Resolving]
  - Metastases to gastrointestinal tract [Recovering/Resolving]
  - Hernia [Recovering/Resolving]
